FAERS Safety Report 6928417-1 (Version None)
Quarter: 2010Q3

REPORT INFORMATION
  Report Type: 
  Country: None (occurrence: None)
  Receive Date: 20100817
  Receipt Date: 20100811
  Transmission Date: 20110219
  Serious: Yes (Hospitalization, Other)
  Sender: FDA-Public Use
  Company Number: US-ABBOTT-10P-163-0638680-00

PATIENT
  Sex: Male
  Weight: 118.04 kg

DRUGS (12)
  1. NIASPAN [Suspect]
     Indication: LOW DENSITY LIPOPROTEIN INCREASED
     Dates: start: 20080101
  2. NIASPAN [Suspect]
     Indication: HIGH DENSITY LIPOPROTEIN DECREASED
  3. TRICOR [Concomitant]
     Indication: BLOOD CHOLESTEROL INCREASED
     Dates: start: 20020101
  4. CRESTOR [Concomitant]
     Indication: BLOOD CHOLESTEROL INCREASED
     Dates: start: 20020101
  5. VITAMIN D [Concomitant]
     Indication: VITAMIN SUPPLEMENTATION
  6. LASIX [Concomitant]
     Indication: CARDIAC DISORDER
     Dates: start: 20020101
  7. METOPROLOL TARTRATE [Concomitant]
     Indication: HYPERTENSION
     Dates: start: 20020101
  8. NOVOLIN 70/30 [Concomitant]
     Indication: DIABETES MELLITUS
     Dosage: IN AM AND PM
  9. PLAVIX [Concomitant]
     Indication: MYOCARDIAL INFARCTION
     Dates: start: 20020101
  10. ASPIRIN [Concomitant]
     Indication: MYOCARDIAL INFARCTION
     Dates: start: 20020101
  11. FISH OIL [Concomitant]
     Indication: MEDICAL DIET
  12. MULTI-VITAMINS [Concomitant]
     Indication: VITAMIN SUPPLEMENTATION

REACTIONS (22)
  - ASTHENIA [None]
  - ATRIAL FIBRILLATION [None]
  - BALANCE DISORDER [None]
  - BRADYCARDIA [None]
  - BRONCHITIS [None]
  - CARDIAC ENZYMES INCREASED [None]
  - DIARRHOEA [None]
  - DYSPHAGIA [None]
  - FALL [None]
  - HAEMATEMESIS [None]
  - HAEMOGLOBIN DECREASED [None]
  - HIGH DENSITY LIPOPROTEIN DECREASED [None]
  - HIP FRACTURE [None]
  - ILEUS [None]
  - OPEN WOUND [None]
  - PNEUMONIA [None]
  - PRODUCTIVE COUGH [None]
  - RESPIRATORY ARREST [None]
  - RESTLESS LEGS SYNDROME [None]
  - SMALL INTESTINAL HAEMORRHAGE [None]
  - TACHYCARDIA [None]
  - THROAT IRRITATION [None]
